FAERS Safety Report 9845557 (Version 1)
Quarter: 2014Q1

REPORT INFORMATION
  Report Type: Spontaneous
  Country: US (occurrence: US)
  Receive Date: 20140127
  Receipt Date: 20140127
  Transmission Date: 20141002
  Serious: No
  Sender: FDA-Public Use
  Company Number: US-PFIZER INC-2014018626

PATIENT
  Sex: Female

DRUGS (3)
  1. ADVIL ALLERGY AND CONGESTION RELIEF [Suspect]
     Indication: NASOPHARYNGITIS
     Dosage: UNK
  2. ADVIL ALLERGY AND CONGESTION RELIEF [Suspect]
     Indication: RESPIRATORY TRACT CONGESTION
  3. ADVIL ALLERGY AND CONGESTION RELIEF [Suspect]
     Indication: MALAISE

REACTIONS (2)
  - Expired drug administered [Unknown]
  - Drug ineffective [Unknown]
